FAERS Safety Report 21693607 (Version 1)
Quarter: 2022Q4

REPORT INFORMATION
  Report Type: Spontaneous
  Country: JP (occurrence: JP)
  Receive Date: 20221207
  Receipt Date: 20221207
  Transmission Date: 20230113
  Serious: Yes (Other)
  Sender: FDA-Public Use
  Company Number: JP-CHEPLA-C20211369

PATIENT
  Age: 62 Year
  Sex: Female
  Weight: 57.9 kg

DRUGS (5)
  1. FLUMAZENIL [Suspect]
     Active Substance: FLUMAZENIL
     Indication: Anaesthesia reversal
     Dosage: 0.5 MG (FIRST DOSE)
     Route: 065
  2. FLUMAZENIL [Suspect]
     Active Substance: FLUMAZENIL
     Dosage: 0.5 MG (SECOND DOSE)
     Route: 065
  3. REMIMAZOLAM [Suspect]
     Active Substance: REMIMAZOLAM
     Indication: General anaesthesia
     Dosage: 12 MG/KG, QH
     Route: 065
  4. REMIMAZOLAM [Suspect]
     Active Substance: REMIMAZOLAM
     Indication: Maintenance of anaesthesia
     Dosage: 1 MG/KG, QH (CONTINUOUS ADMINISTRATION, FOR 3.5 HOURS)
     Route: 065
  5. ROCURONIUM [Suspect]
     Active Substance: ROCURONIUM BROMIDE
     Indication: Endotracheal intubation
     Dosage: 0.6 MG/KG
     Route: 065

REACTIONS (2)
  - Loss of consciousness [Recovered/Resolved]
  - Somnolence [Recovered/Resolved]
